FAERS Safety Report 22610902 (Version 1)
Quarter: 2023Q2

REPORT INFORMATION
  Report Type: Spontaneous
  Country: EG (occurrence: EG)
  Receive Date: 20230616
  Receipt Date: 20230616
  Transmission Date: 20230722
  Serious: Yes (Hospitalization)
  Sender: FDA-Public Use
  Company Number: EG-JNJFOC-20230630012

PATIENT
  Age: 73 Year
  Sex: Male
  Weight: 100 kg

DRUGS (3)
  1. TOPAMAX [Interacting]
     Active Substance: TOPIRAMATE
     Indication: Headache
     Route: 048
  2. TOPAMAX [Interacting]
     Active Substance: TOPIRAMATE
     Indication: Cluster headache
     Route: 048
  3. ASPIRIN [Interacting]
     Active Substance: ASPIRIN
     Indication: Cerebrovascular accident
     Route: 048

REACTIONS (2)
  - Tachypnoea [Recovering/Resolving]
  - Drug interaction [Unknown]
